FAERS Safety Report 4735496-9 (Version None)
Quarter: 2005Q3

REPORT INFORMATION
  Report Type: 
  Country: None (occurrence: None)
  Receive Date: 20050801
  Receipt Date: 20050801
  Transmission Date: 20060218
  Serious: Yes (Hospitalization)
  Sender: FDA-Public Use
  Company Number: None

PATIENT
  Age: 44 Year
  Sex: Female
  Weight: 57 kg

DRUGS (11)
  1. HYDROCHLOROTHIAZIDE 25MG TAB [Suspect]
     Indication: HYPERTENSION
     Dosage: 25 MG PO QD
     Route: 048
     Dates: start: 20031114, end: 20031118
  2. LANSOPRAZOLE [Concomitant]
  3. EFFEXOR [Concomitant]
  4. ZYPREXA [Concomitant]
  5. REMERON [Concomitant]
  6. BUSPAR [Concomitant]
  7. OXYBUTYNIN [Concomitant]
  8. CLARITIN [Concomitant]
  9. GABAPENTIN [Concomitant]
  10. AEROBID [Concomitant]
  11. COMBIVENT [Concomitant]

REACTIONS (3)
  - CONVULSION [None]
  - HYPONATRAEMIA [None]
  - RHINORRHOEA [None]
